FAERS Safety Report 20893773 (Version 1)
Quarter: 2022Q2

REPORT INFORMATION
  Report Type: Spontaneous
  Country: US (occurrence: US)
  Receive Date: 20220531
  Receipt Date: 20220531
  Transmission Date: 20220721
  Serious: Yes (Hospitalization, Other)
  Sender: FDA-Public Use
  Company Number: US-STRIDES ARCOLAB LIMITED-2022SP006243

PATIENT
  Age: 40 Year
  Sex: Female

DRUGS (1)
  1. MEGESTROL ACETATE [Suspect]
     Active Substance: MEGESTROL ACETATE
     Indication: Endometriosis
     Dosage: UNK, AT LEAST 20 YEARS
     Route: 065

REACTIONS (2)
  - Meningioma [Recovered/Resolved]
  - Secondary adrenocortical insufficiency [Unknown]
